FAERS Safety Report 6673264-1 (Version None)
Quarter: 2010Q2

REPORT INFORMATION
  Report Type: 
  Country: None (occurrence: None)
  Receive Date: 20100408
  Receipt Date: 20100329
  Transmission Date: 20101027
  Serious: Yes (Hospitalization)
  Sender: FDA-Public Use
  Company Number: US-WATSON-2010-04109

PATIENT

DRUGS (23)
  1. PREDNISONE TAB [Suspect]
     Indication: PAIN
     Dosage: 5 MG, DAILY
     Route: 048
     Dates: start: 20100101
  2. PREDNISONE TAB [Suspect]
     Indication: POLYMYALGIA RHEUMATICA
     Dosage: 5 MG, DAILY
     Route: 048
     Dates: start: 20091201, end: 20100101
  3. PREDNISONE TAB [Suspect]
     Dosage: 5 MG, DAILY
     Route: 048
     Dates: start: 20091101, end: 20091201
  4. PREDNISONE TAB [Suspect]
     Dosage: 5 MG, DAILY
     Route: 048
     Dates: start: 20091001, end: 20091101
  5. PREDNISONE TAB [Suspect]
     Dosage: 5 MG, DAILY
     Route: 048
     Dates: start: 20090901, end: 20091001
  6. PREDNISONE TAB [Suspect]
     Dosage: 5 MG, BID
     Route: 048
     Dates: start: 20090701, end: 20090901
  7. PREDNISONE TAB [Suspect]
     Dosage: 5 MG, DAILY
     Route: 048
     Dates: start: 20090601, end: 20090701
  8. PREDNISONE TAB [Suspect]
     Dosage: 5 MG, DAILY
     Route: 048
     Dates: start: 20090501, end: 20090601
  9. PREDNISONE TAB [Suspect]
     Dosage: 5 MG, DAILY
     Route: 048
     Dates: start: 20090401, end: 20090501
  10. PREDNISONE TAB [Suspect]
     Dosage: 5 MG, DAILY
     Route: 048
     Dates: start: 20090301, end: 20090401
  11. PREDNISONE TAB [Suspect]
     Dosage: 5 MG, BID
     Route: 048
     Dates: start: 20080301, end: 20090301
  12. PREDNISONE TAB [Suspect]
     Indication: PAIN
     Dosage: 1 MG, DAILY
     Route: 048
     Dates: start: 20091201, end: 20100101
  13. PREDNISONE TAB [Suspect]
     Indication: POLYMYALGIA RHEUMATICA
     Dosage: 2 MG, DAILY
     Route: 048
     Dates: start: 20091101, end: 20091201
  14. PREDNISONE TAB [Suspect]
     Dosage: 3 MG, DAILY
     Route: 048
     Dates: start: 20091001, end: 20091101
  15. PREDNISONE TAB [Suspect]
     Dosage: 4 MG, DAILY
     Route: 048
     Dates: start: 20090901, end: 20091001
  16. PREDNISONE TAB [Suspect]
     Dosage: 1 MG, DAILY
     Route: 048
     Dates: start: 20090601, end: 20090701
  17. PREDNISONE TAB [Suspect]
     Dosage: 2 MG, DAILY
     Route: 048
     Dates: start: 20090501, end: 20090601
  18. PREDNISONE TAB [Suspect]
     Dosage: 3 MG, DAILY
     Route: 048
     Dates: start: 20090401, end: 20090501
  19. PREDNISONE TAB [Suspect]
     Dosage: 4 MG, DAILY
     Route: 048
     Dates: start: 20090301, end: 20090401
  20. LEVAQUIN [Suspect]
     Indication: BRONCHITIS
     Dosage: UNK
     Route: 042
     Dates: start: 20100101, end: 20100101
  21. LEVAQUIN [Suspect]
     Dosage: 750 MG, UNKNOWN
     Route: 048
     Dates: start: 20100101
  22. HYDROCODONE BITARTRATE/ACETAMINOPHEN 2.5/500 (WATSON LABORATORIES) [Concomitant]
     Indication: PAIN
     Dosage: 1 TABLET Q 4 HRS, PRN PAIN
     Route: 048
     Dates: start: 20100104
  23. AZITHROMYCIN [Concomitant]
     Indication: BRONCHITIS
     Dosage: 500 MG, SINGLE
     Route: 048
     Dates: start: 20100108, end: 20100108

REACTIONS (5)
  - ABASIA [None]
  - BRONCHITIS [None]
  - DRUG INTERACTION [None]
  - MUSCULAR WEAKNESS [None]
  - TENDON PAIN [None]
